FAERS Safety Report 4527319-8 (Version None)
Quarter: 2004Q4

REPORT INFORMATION
  Report Type: 
  Country: None (occurrence: None)
  Receive Date: 20041214
  Receipt Date: 20041214
  Transmission Date: 20050328
  Serious: Yes (Hospitalization)
  Sender: FDA-Public Use
  Company Number: None

PATIENT
  Sex: Female
  Weight: 71.6683 kg

DRUGS (7)
  1. BCNU [Suspect]
     Indication: ASTROCYTOMA
     Dosage: 80 MG/M2  DAY 1-3, 56-58 , INTRAVENOUS
     Route: 042
     Dates: start: 20040825, end: 20041011
  2. CARBATROL [Concomitant]
  3. DILANTIN [Concomitant]
  4. TYLENOL (CAPLET) [Concomitant]
  5. BENADRYL [Concomitant]
  6. COMPAZINE [Concomitant]
  7. KYTRIL [Concomitant]

REACTIONS (6)
  - FATIGUE [None]
  - HEADACHE [None]
  - NAUSEA [None]
  - PANCYTOPENIA [None]
  - PYREXIA [None]
  - VOMITING [None]
